FAERS Safety Report 19164435 (Version 2)
Quarter: 2021Q2

REPORT INFORMATION
  Report Type: Report from Study
  Country: US (occurrence: US)
  Receive Date: 20210421
  Receipt Date: 20210423
  Transmission Date: 20210717
  Serious: No
  Sender: FDA-Public Use
  Company Number: NVSC2021US088100

PATIENT
  Sex: Female

DRUGS (6)
  1. COSENTYX [Suspect]
     Active Substance: SECUKINUMAB
     Indication: BLOOD PRESSURE INCREASED
     Dosage: 300 MG, QW
     Route: 058
  2. COSENTYX [Suspect]
     Active Substance: SECUKINUMAB
     Indication: HEADACHE
  3. COSENTYX [Suspect]
     Active Substance: SECUKINUMAB
     Indication: HOT FLUSH
  4. COSENTYX [Suspect]
     Active Substance: SECUKINUMAB
     Indication: HORMONE LEVEL ABNORMAL
  5. COSENTYX [Suspect]
     Active Substance: SECUKINUMAB
     Indication: POOR QUALITY SLEEP
  6. COSENTYX [Suspect]
     Active Substance: SECUKINUMAB
     Indication: FATIGUE

REACTIONS (3)
  - Headache [Unknown]
  - Product use in unapproved indication [Unknown]
  - Blood pressure increased [Unknown]
